FAERS Safety Report 6720385-0 (Version None)
Quarter: 2010Q2

REPORT INFORMATION
  Report Type: 
  Country: None (occurrence: None)
  Receive Date: 20100511
  Receipt Date: 20100429
  Transmission Date: 20101027
  Serious: Yes (Other)
  Sender: FDA-Public Use
  Company Number: DK-PFIZER INC-2010054122

PATIENT
  Age: 56 Year
  Sex: Male

DRUGS (5)
  1. SALAZOPYRIN [Suspect]
     Indication: PSORIATIC ARTHROPATHY
     Dosage: 500 MG, 2X/DAY
     Dates: start: 20070315, end: 20070322
  2. SALAZOPYRIN [Suspect]
     Dosage: 500 MG, 3X/DAY
     Dates: start: 20070323, end: 20070329
  3. SALAZOPYRIN [Suspect]
     Dosage: 500 MG, 4X/DAY
     Dates: start: 20070330, end: 20070101
  4. SALAZOPYRIN [Suspect]
     Dosage: 500 MG, 3X/DAY
     Dates: start: 20070101, end: 20080314
  5. SALAZOPYRIN [Suspect]
     Dosage: 500 MG, 2X/DAY
     Dates: start: 20080424, end: 20090901

REACTIONS (5)
  - DISCOMFORT [None]
  - DRY MOUTH [None]
  - ERECTILE DYSFUNCTION [None]
  - MALE ORGASMIC DISORDER [None]
  - SUICIDAL IDEATION [None]
